FAERS Safety Report 8141646-7 (Version None)
Quarter: 2012Q1

REPORT INFORMATION
  Report Type: 
  Country: None (occurrence: None)
  Receive Date: 20120216
  Receipt Date: 20120207
  Transmission Date: 20120608
  Serious: Yes (Other)
  Sender: FDA-Public Use
  Company Number: US-TEVA-322717USA

PATIENT
  Age: 72 Year
  Sex: Female

DRUGS (2)
  1. BENDAMUSTINE [Suspect]
     Indication: PROLYMPHOCYTIC LEUKAEMIA
     Route: 042
  2. ALLOPURINOL [Concomitant]

REACTIONS (19)
  - STAPHYLOCOCCUS TEST POSITIVE [None]
  - NEUTROPENIA [None]
  - EOSINOPHILIA [None]
  - BLOOD LACTATE DEHYDROGENASE INCREASED [None]
  - RASH MACULO-PAPULAR [None]
  - SINUS TACHYCARDIA [None]
  - BLISTER [None]
  - WEIGHT DECREASED [None]
  - RASH GENERALISED [None]
  - PURPURA [None]
  - THROMBOCYTOPENIA [None]
  - OEDEMA PERIPHERAL [None]
  - DYSPNOEA EXERTIONAL [None]
  - LYMPHOCYTIC INFILTRATION [None]
  - ASPARTATE AMINOTRANSFERASE INCREASED [None]
  - ALANINE AMINOTRANSFERASE INCREASED [None]
  - SKIN ULCER [None]
  - ANAEMIA [None]
  - LYMPHOCYTOSIS [None]
